FAERS Safety Report 7027015-1 (Version None)
Quarter: 2010Q4

REPORT INFORMATION
  Report Type: 
  Country: None (occurrence: None)
  Receive Date: 20101004
  Receipt Date: 20100922
  Transmission Date: 20110411
  Serious: Yes (Death)
  Sender: FDA-Public Use
  Company Number: DE-WYE-H17879710

PATIENT
  Sex: Female

DRUGS (5)
  1. SIROLIMUS [Suspect]
     Indication: CHRONIC GRAFT VERSUS HOST DISEASE
     Dosage: DOSE VARYING/ADJUSTED TO DRUG LEVEL (TARGET LEVEL 3-8 NG/ML)
     Route: 065
     Dates: start: 20040917
  2. SIROLIMUS [Suspect]
     Indication: SCLERODERMA
  3. GEMCITABINE [Concomitant]
     Dosage: 1000 MG/M2
     Dates: start: 20080130
  4. GEMCITABINE [Concomitant]
     Dosage: 1000 MG/M2
     Dates: start: 20080206
  5. GEMCITABINE [Concomitant]
     Dosage: 1000 MG/M2
     Dates: start: 20080213

REACTIONS (2)
  - MALIGNANT PLEURAL EFFUSION [None]
  - NON-SMALL CELL LUNG CANCER METASTATIC [None]
